FAERS Safety Report 4578254-0 (Version None)
Quarter: 2005Q1

REPORT INFORMATION
  Report Type: 
  Country: None (occurrence: None)
  Receive Date: 20050209
  Receipt Date: 20050125
  Transmission Date: 20050727
  Serious: No
  Sender: FDA-Public Use
  Company Number: CEL-2004-01986-ROC

PATIENT
  Age: 9 Year
  Sex: Male
  Weight: 30 kg

DRUGS (1)
  1. METADATE CD [Suspect]
     Indication: ATTENTION DEFICIT/HYPERACTIVITY DISORDER
     Dosage: 10MG ONCE PO
     Route: 048
     Dates: start: 20041108, end: 20041108

REACTIONS (3)
  - DIPLOPIA [None]
  - DYSPNOEA [None]
  - WHEEZING [None]
